FAERS Safety Report 6918796-3 (Version None)
Quarter: 2010Q3

REPORT INFORMATION
  Report Type: 
  Country: None (occurrence: None)
  Receive Date: 20100811
  Receipt Date: 20100803
  Transmission Date: 20110219
  Serious: Yes (Other)
  Sender: FDA-Public Use
  Company Number: JP-PFIZER INC-2010093560

PATIENT
  Age: 69 Year
  Sex: Male

DRUGS (11)
  1. ZITHROMAC SR [Suspect]
     Dosage: 2 G, SINGLE
     Route: 048
     Dates: start: 20100726, end: 20100726
  2. PONTAL [Suspect]
  3. NORVASC [Suspect]
     Route: 048
  4. DASEN [Suspect]
  5. MUCOSTA [Suspect]
  6. MEDICON [Suspect]
  7. TENORMIN [Suspect]
  8. ALLOPURINOL [Suspect]
  9. GASTER D [Suspect]
  10. PREDONINE [Suspect]
  11. GLYBURIDE [Suspect]

REACTIONS (1)
  - BODY TEMPERATURE DECREASED [None]
